FAERS Safety Report 14110580 (Version 1)
Quarter: 2017Q4

REPORT INFORMATION
  Report Type: Spontaneous
  Country: US (occurrence: US)
  Receive Date: 20171020
  Receipt Date: 20171020
  Transmission Date: 20180321
  Serious: Yes (Disabling, Other)
  Sender: FDA-Public Use
  Company Number: US-NAPPMUNDI-GBR-2017-0049845

PATIENT
  Age: 62 Year
  Sex: Male

DRUGS (2)
  1. HYDROMORPHONE HYDROCHLORIDE. [Suspect]
     Active Substance: HYDROMORPHONE HYDROCHLORIDE
     Indication: PRODUCT USED FOR UNKNOWN INDICATION
     Dosage: UNK, SEE TEXT
     Route: 013
  2. HYDROMORPHONE HYDROCHLORIDE. [Suspect]
     Active Substance: HYDROMORPHONE HYDROCHLORIDE
     Dosage: UNK, SEE TEXT
     Route: 042

REACTIONS (2)
  - Peripheral ischaemia [Unknown]
  - Drug abuse [Recovering/Resolving]
